FAERS Safety Report 4570305-2 (Version None)
Quarter: 2005Q1

REPORT INFORMATION
  Report Type: 
  Country: None (occurrence: None)
  Receive Date: 20050127
  Receipt Date: 20050127
  Transmission Date: 20050727
  Serious: Yes (Life-Threatening)
  Sender: FDA-Public Use
  Company Number: None

PATIENT
  Sex: Female
  Weight: 47 kg

DRUGS (9)
  1. ABACAVIR [Suspect]
     Indication: HIV INFECTION
     Dosage: 300 MG  BID ORAL
     Route: 048
     Dates: start: 20040923, end: 20040923
  2. LAMIVUDINE [Concomitant]
  3. DAPSONE [Concomitant]
  4. KALETRA [Concomitant]
  5. WARFARIN SODIUM [Concomitant]
  6. AZITHROMYCIN [Concomitant]
  7. AMLODIPINE [Concomitant]
  8. NEUPOGEN [Concomitant]
  9. VORICONAZOLE [Concomitant]

REACTIONS (10)
  - ASTHENIA [None]
  - CARDIO-RESPIRATORY ARREST [None]
  - DYSPNOEA [None]
  - FAECAL INCONTINENCE [None]
  - FEBRILE NEUTROPENIA [None]
  - LACTIC ACIDOSIS [None]
  - OXYGEN SATURATION DECREASED [None]
  - POST PROCEDURAL NAUSEA [None]
  - POST PROCEDURAL VOMITING [None]
  - SUPRAVENTRICULAR TACHYCARDIA [None]
